FAERS Safety Report 6693342-0 (Version None)
Quarter: 2010Q2

REPORT INFORMATION
  Report Type: 
  Country: None (occurrence: None)
  Receive Date: 20100420
  Receipt Date: 20100407
  Transmission Date: 20101027
  Serious: Yes (Hospitalization, Other)
  Sender: FDA-Public Use
  Company Number: 7000782

PATIENT
  Age: 43 Year
  Sex: Female
  Weight: 89 kg

DRUGS (7)
  1. REBIF [Suspect]
     Indication: MULTIPLE SCLEROSIS
     Dosage: 44 MCG, 3 IN 1 WK; 22 MCG
     Dates: start: 20030101, end: 20040101
  2. REBIF [Suspect]
     Indication: MULTIPLE SCLEROSIS
     Dosage: 44 MCG, 3 IN 1 WK; 22 MCG
     Dates: start: 20080101, end: 20100101
  3. REBIF [Suspect]
     Indication: MULTIPLE SCLEROSIS
     Dosage: 44 MCG, 3 IN 1 WK; 22 MCG
     Dates: start: 20040901
  4. WELLBUTRIN [Concomitant]
  5. TOPAMAX [Concomitant]
  6. OXYCONTIN [Concomitant]
  7. POTASSIUM SUPPLEMENT (POTASSIUM) [Concomitant]

REACTIONS (12)
  - BLOOD POTASSIUM DECREASED [None]
  - BLOOD PRESSURE INCREASED [None]
  - CONDITION AGGRAVATED [None]
  - CONFUSIONAL STATE [None]
  - DELUSION [None]
  - DEPRESSION [None]
  - INFLUENZA LIKE ILLNESS [None]
  - PALPITATIONS [None]
  - PANCREATITIS CHRONIC [None]
  - SCAR [None]
  - TYPE 2 DIABETES MELLITUS [None]
  - WEIGHT INCREASED [None]
